FAERS Safety Report 7673603-9 (Version None)
Quarter: 2011Q3

REPORT INFORMATION
  Report Type: 
  Country: None (occurrence: None)
  Receive Date: 20110804
  Receipt Date: 20110720
  Transmission Date: 20111222
  Serious: Yes (Death, Hospitalization)
  Sender: FDA-Public Use
  Company Number: 2011MA009198

PATIENT
  Sex: Male

DRUGS (1)
  1. CARBAMAZEPINE [Suspect]
     Indication: EPILEPSY

REACTIONS (3)
  - BRONCHOPNEUMONIA [None]
  - ILL-DEFINED DISORDER [None]
  - SUDDEN UNEXPLAINED DEATH IN EPILEPSY [None]
